FAERS Safety Report 20160151 (Version 1)
Quarter: 2021Q4

REPORT INFORMATION
  Report Type: Spontaneous
  Country: US (occurrence: None)
  Receive Date: 20211207
  Receipt Date: 20211207
  Transmission Date: 20220303
  Serious: Yes (Hospitalization)
  Sender: FDA-Public Use
  Company Number: None

PATIENT
  Sex: Male

DRUGS (11)
  1. ALECENSA [Suspect]
     Active Substance: ALECTINIB HYDROCHLORIDE
     Indication: Lung neoplasm malignant
     Dosage: FREQUENCY : TWICE A DAY;?
     Route: 048
     Dates: start: 20211012
  2. ALECENSA [Concomitant]
     Active Substance: ALECTINIB HYDROCHLORIDE
  3. CHLORTHALID TAB 25MG [Concomitant]
  4. METFORMIN [Concomitant]
     Active Substance: METFORMIN HYDROCHLORIDE
  5. MUCINEX TAB 600MG ER [Concomitant]
  6. PROCHLORPER TAB 10MG [Concomitant]
  7. SIMVASTATIN [Concomitant]
     Active Substance: SIMVASTATIN
  8. TRELEGY AER ELLIPTA [Concomitant]
  9. VITAMIN D CAP 50000UNT [Concomitant]
  10. WARFARIN TAB 5MG [Concomitant]
  11. WARFARINTAB  7.5MG [Concomitant]

REACTIONS (2)
  - Dyspnoea [None]
  - Therapy interrupted [None]
